FAERS Safety Report 20750903 (Version 1)
Quarter: 2022Q2

REPORT INFORMATION
  Report Type: Spontaneous
  Country: ZA (occurrence: None)
  Receive Date: 20220426
  Receipt Date: 20220426
  Transmission Date: 20220721
  Serious: Yes (Hospitalization, Other)
  Sender: FDA-Public Use
  Company Number: ZA-ROCHE-3077477

PATIENT
  Sex: Female

DRUGS (2)
  1. OCREVUS [Suspect]
     Active Substance: OCRELIZUMAB
     Indication: Relapsing-remitting multiple sclerosis
     Dosage: LAST INFUSION 14/APR/2022 (THEN 600MG EVERY SIX MONTHS)
     Route: 041
     Dates: start: 202104
  2. SOLU-MEDROL [Concomitant]
     Active Substance: METHYLPREDNISOLONE SODIUM SUCCINATE

REACTIONS (8)
  - Multiple sclerosis relapse [Unknown]
  - Muscular weakness [Unknown]
  - Muscle spasticity [Unknown]
  - Intention tremor [Unknown]
  - Dysdiadochokinesis [Unknown]
  - Gait disturbance [Unknown]
  - Gait inability [Unknown]
  - Hyperreflexia [Unknown]
